FAERS Safety Report 5625291-0 (Version None)
Quarter: 2008Q1

REPORT INFORMATION
  Report Type: 
  Country: None (occurrence: None)
  Receive Date: 20080208
  Receipt Date: 20080124
  Transmission Date: 20080703
  Serious: Yes (Other)
  Sender: FDA-Public Use
  Company Number: 2008S1001320

PATIENT
  Age: 24 Year
  Sex: Male

DRUGS (5)
  1. TRAMADOL HCL [Suspect]
     Indication: DRUG USE FOR UNKNOWN INDICATION
     Dosage: ORAL
     Route: 048
  2. CITALOPRAM HYDROBROMIDE [Suspect]
     Dosage: 80 MG; ORAL
     Route: 048
  3. DOMINAL [Suspect]
     Dosage: 80 MG; ORAL
     Route: 048
  4. MIRTAZAPINE [Suspect]
     Dosage: 120 MG; ORAL
     Route: 048
  5. LORAZEPAM [Suspect]
     Dosage: 2 MG  ; ORAL
     Route: 048

REACTIONS (3)
  - DRUG ABUSE [None]
  - FATIGUE [None]
  - TACHYCARDIA [None]
